FAERS Safety Report 9224169 (Version 1)
Quarter: 2013Q1

REPORT INFORMATION
  Report Type: Spontaneous
  Country: US (occurrence: None)
  Receive Date: 20120830
  Receipt Date: 20120830
  Transmission Date: 20140127
  Serious: Yes (Other)
  Sender: FDA-Public Use
  Company Number: PHEH2011US009355

PATIENT
  Age: 77 Year
  Sex: Male

DRUGS (2)
  1. EXFORGE [Suspect]
     Dosage: 1 DF (320/10MG), QD
  2. VITAMINS NOS (VITAMINS NOS) [Concomitant]

REACTIONS (2)
  - Blood pressure increased [None]
  - Drug ineffective [None]
